FAERS Safety Report 18528566 (Version 1)
Quarter: 2020Q4

REPORT INFORMATION
  Report Type: Report from Study
  Country: US (occurrence: US)
  Receive Date: 20201120
  Receipt Date: 20201120
  Transmission Date: 20210114
  Serious: Yes (Other)
  Sender: FDA-Public Use
  Company Number: US-JNJFOC-20201125054

PATIENT
  Age: 50 Year
  Sex: Female

DRUGS (5)
  1. ESKETAMINE [Suspect]
     Active Substance: ESKETAMINE
     Dosage: 84MG, 5 TOTAL DOSES
     Dates: start: 20200120, end: 20200224
  2. ESKETAMINE [Suspect]
     Active Substance: ESKETAMINE
     Dates: start: 20201105, end: 20201105
  3. ESKETAMINE [Suspect]
     Active Substance: ESKETAMINE
     Indication: DEPRESSION
     Dosage: 56MG, 20 TOTAL DOSES
     Dates: start: 20191008, end: 20200113
  4. ESKETAMINE [Suspect]
     Active Substance: ESKETAMINE
     Dosage: 56MG, 8 TOTAL DOSES
     Dates: start: 20200302, end: 20200514
  5. ESKETAMINE [Suspect]
     Active Substance: ESKETAMINE
     Dosage: 84MG, 34 TOTAL DOSES
     Dates: start: 20200521, end: 20201029

REACTIONS (1)
  - Hypertension [Recovered/Resolved]

NARRATIVE: CASE EVENT DATE: 20201105
